FAERS Safety Report 8087351-7 (Version None)
Quarter: 2012Q1

REPORT INFORMATION
  Report Type: 
  Country: None (occurrence: None)
  Receive Date: 20120128
  Receipt Date: 20110426
  Transmission Date: 20120608
  Serious: No
  Sender: FDA-Public Use
  Company Number: US-ABBOTT-11P-163-0722244-00

PATIENT
  Sex: Female
  Weight: 90.8 kg

DRUGS (2)
  1. PLENDIL [Concomitant]
     Indication: HYPERTENSION
  2. HUMIRA [Suspect]
     Indication: PSORIASIS
     Dates: start: 20100101, end: 20110401

REACTIONS (9)
  - PAIN IN EXTREMITY [None]
  - JOINT SWELLING [None]
  - CONTUSION [None]
  - MIGRAINE [None]
  - GAIT DISTURBANCE [None]
  - MASS [None]
  - DRY SKIN [None]
  - PRURITUS [None]
  - OEDEMA PERIPHERAL [None]
